FAERS Safety Report 12985288 (Version 1)
Quarter: 2016Q4

REPORT INFORMATION
  Report Type: Spontaneous
  Country: GB (occurrence: GB)
  Receive Date: 20161130
  Receipt Date: 20161130
  Transmission Date: 20170207
  Serious: Yes (Other)
  Sender: FDA-Public Use
  Company Number: GB-B.I. PHARMACEUTICALS,INC./RIDGEFIELD-2016-BI-081140

PATIENT

DRUGS (2)
  1. NINTEDANIB [Suspect]
     Active Substance: NINTEDANIB
     Indication: PRODUCT USED FOR UNKNOWN INDICATION
     Route: 065
  2. DALTEPARIN [Concomitant]
     Active Substance: DALTEPARIN
     Indication: PRODUCT USED FOR UNKNOWN INDICATION
     Route: 065

REACTIONS (1)
  - Pulmonary embolism [Unknown]
